FAERS Safety Report 8869202 (Version 2)
Quarter: 2012Q4

REPORT INFORMATION
  Report Type: Spontaneous
  Country: US (occurrence: None)
  Receive Date: 20121025
  Receipt Date: 20121025
  Transmission Date: 20130627
  Serious: Yes (Hospitalization)
  Sender: FDA-Public Use
  Company Number: None

PATIENT
  Sex: Male
  Weight: 98.3 kg

DRUGS (8)
  1. AVASTIN [Suspect]
     Indication: ADENOCARCINOMA OF THE GASTROESOPHAGEAL JUNCTION
     Dosage: 5mg/kg IV Q2weeks
     Route: 042
     Dates: start: 20120816
  2. AVASTIN [Suspect]
     Indication: ADENOCARCINOMA OF THE GASTROESOPHAGEAL JUNCTION
     Route: 042
     Dates: start: 20120830
  3. AVASTIN [Suspect]
     Indication: ADENOCARCINOMA OF THE GASTROESOPHAGEAL JUNCTION
     Route: 042
     Dates: start: 20120913
  4. AVASTIN [Suspect]
     Indication: ADENOCARCINOMA OF THE GASTROESOPHAGEAL JUNCTION
     Route: 042
     Dates: start: 20120927
  5. FOLFOX-6 [Suspect]
     Indication: ADENOCARCINOMA OF THE GASTROESOPHAGEAL JUNCTION
     Dosage: 85mg/m2, 400mg/m2, 2400mg/
     Dates: start: 20120816
  6. FOLFOX-6 [Suspect]
     Indication: ADENOCARCINOMA OF THE GASTROESOPHAGEAL JUNCTION
     Dosage: 85mg//m2, 400mg/m2, 2400mg/
     Dates: start: 20120830
  7. FOLFOX-6 [Suspect]
     Indication: ADENOCARCINOMA OF THE GASTROESOPHAGEAL JUNCTION
     Dosage: 85mg/m2, 400mg/m2, 2400mg/
     Dates: start: 20120913
  8. FOLFOX-6 [Suspect]
     Indication: ADENOCARCINOMA OF THE GASTROESOPHAGEAL JUNCTION
     Dosage: 85mg/m2, 400mg/m2, 2400mg/
     Dates: start: 20120927

REACTIONS (1)
  - Clostridium difficile colitis [None]
